FAERS Safety Report 8029755-4 (Version None)
Quarter: 2012Q1

REPORT INFORMATION
  Report Type: 
  Country: None (occurrence: None)
  Receive Date: 20120104
  Receipt Date: 20111219
  Transmission Date: 20120608
  Serious: Yes (Life-Threatening, Hospitalization, Disabling, Other)
  Sender: FDA-Public Use
  Company Number: FK201103091

PATIENT
  Age: 66 Year
  Sex: Male

DRUGS (8)
  1. ERYTHROMYCIN [Suspect]
     Indication: WOUND INFECTION
     Dosage: 250 MG, 4 IN 1 D, ORAL
     Route: 048
     Dates: start: 20110524, end: 20110602
  2. AMITRIPTYLINE (AMITRIPTYLINE) (AMITRIPTYLINE) [Concomitant]
  3. METHOTREXATE [Suspect]
     Indication: RHEUMATOID ARTHRITIS
     Dosage: 20 MG, 1 IN 1 WK, ORAL
     Route: 048
     Dates: end: 20110516
  4. ATENOLOL [Concomitant]
  5. ALLOPURINOL [Concomitant]
  6. PREDNISOLONE [Concomitant]
  7. LEFLUNOMIDE [Suspect]
     Indication: SERONEGATIVE ARTHRITIS
     Dosage: 10 MG, 1 IN 1 D, ORAL
     Route: 048
     Dates: start: 20110427, end: 20110603
  8. DIHYDROCODEINE (DIHYDROCODEINE) (DIHYDROCODEINE) [Concomitant]

REACTIONS (14)
  - ERYTHEMA MULTIFORME [None]
  - SEPSIS [None]
  - GENERAL PHYSICAL HEALTH DETERIORATION [None]
  - DELIRIUM [None]
  - HEPATIC FAILURE [None]
  - RENAL FAILURE ACUTE [None]
  - ORGAN FAILURE [None]
  - VASCULITIC RASH [None]
  - INFARCTION [None]
  - LETHARGY [None]
  - COAGULOPATHY [None]
  - HEPATIC FUNCTION ABNORMAL [None]
  - DYSPNOEA [None]
  - WOUND INFECTION [None]
